FAERS Safety Report 8180816-9 (Version None)
Quarter: 2012Q1

REPORT INFORMATION
  Report Type: 
  Country: None (occurrence: None)
  Receive Date: 20120302
  Receipt Date: 20120228
  Transmission Date: 20120608
  Serious: Yes (Hospitalization, Other)
  Sender: FDA-Public Use
  Company Number: FR-ABBOTT-12P-056-0889099-00

PATIENT
  Sex: Male

DRUGS (13)
  1. NORVIR [Suspect]
     Indication: HIV INFECTION
     Route: 048
     Dates: start: 20111007, end: 20111209
  2. BLEOMYCIN SULFATE [Interacting]
     Indication: CHEMOTHERAPY
     Route: 042
     Dates: start: 20111128, end: 20111128
  3. CISPLATIN [Interacting]
     Indication: CHEMOTHERAPY
     Route: 042
     Dates: start: 20111128, end: 20111202
  4. TRUVADA [Concomitant]
     Indication: HIV INFECTION
     Route: 048
     Dates: start: 20111007
  5. BACTRIM [Concomitant]
     Indication: PRODUCT USED FOR UNKNOWN INDICATION
     Route: 048
     Dates: start: 20111007
  6. RASBURICASE [Concomitant]
     Indication: PRODUCT USED FOR UNKNOWN INDICATION
     Dates: start: 20111128, end: 20111202
  7. EMEND [Concomitant]
     Indication: PRODUCT USED FOR UNKNOWN INDICATION
     Dates: start: 20111128
  8. POLARAMINE [Concomitant]
     Indication: PRODUCT USED FOR UNKNOWN INDICATION
     Dates: start: 20111128, end: 20111128
  9. ETOPOSIDE [Interacting]
     Indication: CHEMOTHERAPY
     Route: 042
     Dates: start: 20111128, end: 20111202
  10. BLEOMYCIN SULFATE [Interacting]
     Route: 042
     Dates: start: 20111206, end: 20111206
  11. POLARAMINE [Concomitant]
     Dates: start: 20111206, end: 20111206
  12. ZOFRAN [Concomitant]
     Indication: PRODUCT USED FOR UNKNOWN INDICATION
     Dates: start: 20111128
  13. REYATAZ [Concomitant]
     Indication: HIV INFECTION
     Route: 048
     Dates: start: 20111007

REACTIONS (8)
  - ASTHENIA [None]
  - FEBRILE BONE MARROW APLASIA [None]
  - TESTICULAR NEOPLASM [None]
  - PSEUDOMONAS INFECTION [None]
  - DRUG INTERACTION [None]
  - RENAL FAILURE ACUTE [None]
  - APHTHOUS STOMATITIS [None]
  - DIARRHOEA [None]
